FAERS Safety Report 23239106 (Version 1)
Quarter: 2023Q4

REPORT INFORMATION
  Report Type: Spontaneous
  Country: US (occurrence: US)
  Receive Date: 20231129
  Receipt Date: 20231129
  Transmission Date: 20240110
  Serious: Yes (Hospitalization, Other)
  Sender: FDA-Public Use
  Company Number: US-MARIUS PHARMACEUTICALS-2023US004199

PATIENT

DRUGS (1)
  1. TESTOSTERONE UNDECANOATE [Suspect]
     Active Substance: TESTOSTERONE UNDECANOATE
     Indication: Erectile dysfunction
     Dosage: UNK

REACTIONS (3)
  - Right ventricular dysfunction [Unknown]
  - Pulmonary embolism [Unknown]
  - Polycythaemia [Recovered/Resolved]
